FAERS Safety Report 8086430-8 (Version None)
Quarter: 2012Q1

REPORT INFORMATION
  Report Type: 
  Country: None (occurrence: None)
  Receive Date: 20120128
  Receipt Date: 20110510
  Transmission Date: 20120608
  Serious: No
  Sender: FDA-Public Use
  Company Number: US-ABBOTT-11P-163-0724927-00

PATIENT
  Age: 42 Year
  Sex: Male
  Weight: 111.23 kg

DRUGS (3)
  1. UNKNOWN BLOOD PRESSURE MEDICATION [Concomitant]
     Indication: HYPERTENSION
  2. HUMIRA [Suspect]
     Indication: RHEUMATOID ARTHRITIS
     Dates: start: 20110101, end: 20110101
  3. UNKNOWN ANTI HEART BURN MEDICATION [Concomitant]
     Indication: DYSPEPSIA

REACTIONS (4)
  - NAUSEA [None]
  - MALAISE [None]
  - DIARRHOEA [None]
  - FATIGUE [None]
